FAERS Safety Report 18119460 (Version 1)
Quarter: 2020Q3

REPORT INFORMATION
  Report Type: Spontaneous
  Country: US (occurrence: US)
  Receive Date: 20200806
  Receipt Date: 20200806
  Transmission Date: 20201103
  Serious: Yes (Other)
  Sender: FDA-Public Use
  Company Number: None

PATIENT
  Age: 73 Year
  Sex: Female
  Weight: 65.25 kg

DRUGS (5)
  1. FIORINAL [Concomitant]
     Active Substance: ASPIRIN\BUTALBITAL\CAFFEINE
  2. PREVACID 24 HR [Concomitant]
     Active Substance: LANSOPRAZOLE
  3. MYLANTA MAXIMUM STRENGTH VANILLA CARAMEL FLAVOR [Suspect]
     Active Substance: ALUMINUM HYDROXIDE\DIMETHICONE\MAGNESIUM HYDROXIDE
     Indication: ABDOMINAL DISCOMFORT
     Dosage: ?          QUANTITY:1 OUNCE(S);?
     Route: 048
     Dates: start: 20200805, end: 20200806
  4. VITAMINS [Concomitant]
     Active Substance: VITAMINS
  5. PROBIOTIC [Concomitant]
     Active Substance: PROBIOTICS NOS

REACTIONS (4)
  - Product formulation issue [None]
  - Product use complaint [None]
  - Migraine [None]
  - Product label issue [None]

NARRATIVE: CASE EVENT DATE: 20200805
